FAERS Safety Report 9800035 (Version 2)
Quarter: 2014Q1

REPORT INFORMATION
  Report Type: Spontaneous
  Country: US (occurrence: US)
  Receive Date: 20140106
  Receipt Date: 20140106
  Transmission Date: 20141002
  Serious: No
  Sender: FDA-Public Use
  Company Number: US-GILEAD-2010-0030498

PATIENT
  Age: 71 Year
  Sex: Female
  Weight: 63.5 kg

DRUGS (10)
  1. LETAIRIS [Suspect]
     Indication: PULMONARY ARTERIAL HYPERTENSION
     Route: 048
     Dates: start: 20100419
  2. ATENOLOL [Concomitant]
  3. CALTRATE W-D [Concomitant]
  4. PRAVASTATIN [Concomitant]
  5. AMLODIPINE W/BENAZEPRIL [Concomitant]
  6. METFORMIN ER [Concomitant]
  7. NEXIUM [Concomitant]
  8. CHLORDIAZEPOXIDE/CLIND [Concomitant]
  9. OMEGA 3 [Concomitant]
  10. ADULT ASPIRIN [Concomitant]

REACTIONS (1)
  - Anaemia [Unknown]
